FAERS Safety Report 13554108 (Version 2)
Quarter: 2017Q2

REPORT INFORMATION
  Report Type: Spontaneous
  Country: JP (occurrence: JP)
  Receive Date: 20170517
  Receipt Date: 20170609
  Transmission Date: 20170830
  Serious: Yes (Hospitalization, Other)
  Sender: FDA-Public Use
  Company Number: JP-BAXTER-2017BAX005721

PATIENT
  Age: 8 Year
  Sex: Female

DRUGS (8)
  1. UROMITEXAN 400 MG [Suspect]
     Active Substance: MESNA
     Indication: PRODUCT USED FOR UNKNOWN INDICATION
     Route: 065
     Dates: start: 20161206, end: 20161210
  2. IFOSFAMIDE FOR INJECTION [Suspect]
     Active Substance: IFOSFAMIDE
     Dosage: 50% REDUCED DOSE:SPENDING 3 HOURS
     Route: 041
     Dates: start: 20161206, end: 20161210
  3. CARBOPLATIN. [Suspect]
     Active Substance: CARBOPLATIN
     Indication: NEUROBLASTOMA
     Route: 041
  4. GRANISETRON [Suspect]
     Active Substance: GRANISETRON
     Indication: PROPHYLAXIS
     Route: 041
     Dates: start: 20161206, end: 20161210
  5. CELLTOP 100 MG/5 ML, SOLUTION INJECTABLE POUR PERFUSION [Suspect]
     Active Substance: ETOPOSIDE
     Indication: NEUROBLASTOMA
     Route: 041
  6. CELLTOP 100 MG/5 ML, SOLUTION INJECTABLE POUR PERFUSION [Suspect]
     Active Substance: ETOPOSIDE
     Dosage: 50% REDUCED DOSE:SPENDING 2 HOURS
     Route: 041
     Dates: start: 20161206, end: 20161210
  7. PROEMEND [Suspect]
     Active Substance: FOSAPREPITANT
     Indication: PROPHYLAXIS
     Dosage: SPENDING 1HOUR
     Route: 041
     Dates: start: 20161206, end: 20161206
  8. IFOSFAMIDE FOR INJECTION [Suspect]
     Active Substance: IFOSFAMIDE
     Indication: NEUROBLASTOMA
     Route: 041

REACTIONS (2)
  - Myoclonic epilepsy [Recovered/Resolved]
  - Bone marrow failure [Recovered/Resolved]

NARRATIVE: CASE EVENT DATE: 20160930
